FAERS Safety Report 9450888 (Version 1)
Quarter: 2013Q3

REPORT INFORMATION
  Report Type: Spontaneous
  Country: GB (occurrence: GB)
  Receive Date: 20130809
  Receipt Date: 20130809
  Transmission Date: 20140515
  Serious: Yes (Other)
  Sender: FDA-Public Use
  Company Number: GB-BRISTOL-MYERS SQUIBB COMPANY-19183235

PATIENT
  Sex: Female

DRUGS (2)
  1. SPRYCEL [Suspect]
  2. IMATINIB MESILATE [Suspect]

REACTIONS (1)
  - Myelocytosis [Unknown]
